FAERS Safety Report 7161723-7 (Version None)
Quarter: 2010Q4

REPORT INFORMATION
  Report Type: 
  Country: None (occurrence: None)
  Receive Date: 20101202
  Receipt Date: 20101202
  Transmission Date: 20110411
  Serious: No
  Sender: FDA-Public Use
  Company Number: None

PATIENT
  Age: 74 Year
  Sex: Male

DRUGS (17)
  1. AVANDIA [Suspect]
  2. ENTRIC COATED ASA [Concomitant]
  3. PLAVIX [Concomitant]
  4. METOPROLOL [Concomitant]
  5. ALTACE [Concomitant]
  6. AVANDIA [Concomitant]
  7. LIPITOR [Concomitant]
  8. METFORMIN [Concomitant]
  9. IRON [Concomitant]
  10. NITROSTAT [Concomitant]
  11. ATACAND [Concomitant]
  12. CRESTOR [Concomitant]
  13. PLAVIX [Concomitant]
  14. RIVOTROL [Concomitant]
  15. LOPRESSOR [Concomitant]
  16. FOLATE [Concomitant]
  17. GLUMETZA [Concomitant]

REACTIONS (2)
  - DEMENTIA [None]
  - MENTAL DISORDER [None]
